FAERS Safety Report 10191446 (Version 1)
Quarter: 2014Q2

REPORT INFORMATION
  Report Type: Spontaneous
  Country: US (occurrence: US)
  Receive Date: 20140523
  Receipt Date: 20140523
  Transmission Date: 20141212
  Serious: No
  Sender: FDA-Public Use
  Company Number: US-PFIZER INC-2014138467

PATIENT
  Age: 88 Year
  Sex: Female
  Weight: 74.8 kg

DRUGS (11)
  1. SOLU-MEDROL [Suspect]
     Dosage: UNK
     Route: 042
  2. ARICEPT [Concomitant]
     Dosage: UNK
  3. LEVOTHYROXINE [Concomitant]
     Indication: THYROID DISORDER
     Dosage: UNK
  4. CARVEDILOL [Concomitant]
     Indication: HYPERTENSION
     Dosage: UNK
  5. NORVASC [Concomitant]
     Indication: HYPERTENSION
     Dosage: UNK
  6. FLUOXETINE [Concomitant]
     Dosage: UNK
  7. VITAMIN C [Concomitant]
     Dosage: UNK
  8. WARFARIN [Concomitant]
     Dosage: 2 MG, AS NEEDED
  9. CADUET [Concomitant]
     Indication: HYPERTENSION
     Dosage: UNK, 1X/DAY
  10. DETROL LA [Concomitant]
     Indication: URINARY INCONTINENCE
     Dosage: 4 MG, 1X/DAY
     Route: 048
  11. PROTONIX [Concomitant]
     Indication: ABDOMINAL DISCOMFORT
     Dosage: 40 MG, 1X/DAY
     Route: 048

REACTIONS (2)
  - Blood glucose increased [Unknown]
  - Stress [Unknown]
